FAERS Safety Report 15666823 (Version 1)
Quarter: 2018Q4

REPORT INFORMATION
  Report Type: Spontaneous
  Country: US (occurrence: US)
  Receive Date: 20181128
  Receipt Date: 20181128
  Transmission Date: 20190205
  Serious: No
  Sender: FDA-Public Use
  Company Number: US-ROCHE-2126696

PATIENT
  Age: 62 Year
  Sex: Female
  Weight: 59.02 kg

DRUGS (1)
  1. OCREVUS [Suspect]
     Active Substance: OCRELIZUMAB
     Indication: MULTIPLE SCLEROSIS RELAPSE
     Route: 042
     Dates: start: 20171222

REACTIONS (7)
  - Dental caries [Not Recovered/Not Resolved]
  - Glossitis [Not Recovered/Not Resolved]
  - Dysgeusia [Unknown]
  - Dizziness [Unknown]
  - Balance disorder [Unknown]
  - Swollen tongue [Not Recovered/Not Resolved]
  - Toothache [Not Recovered/Not Resolved]

NARRATIVE: CASE EVENT DATE: 201805
